FAERS Safety Report 8270474-7 (Version None)
Quarter: 2012Q2

REPORT INFORMATION
  Report Type: 
  Country: None (occurrence: None)
  Receive Date: 20120410
  Receipt Date: 20111130
  Transmission Date: 20120825
  Serious: Yes (Other)
  Sender: FDA-Public Use
  Company Number: US-BAYER-2011-115497

PATIENT
  Sex: Female

DRUGS (1)
  1. BETAPACE [Suspect]
     Indication: ATRIAL FIBRILLATION

REACTIONS (1)
  - ATRIAL FIBRILLATION [None]
